FAERS Safety Report 17252854 (Version 1)
Quarter: 2020Q1

REPORT INFORMATION
  Report Type: Spontaneous
  Country: CN (occurrence: CN)
  Receive Date: 20200109
  Receipt Date: 20200109
  Transmission Date: 20200409
  Serious: Yes (Hospitalization)
  Sender: FDA-Public Use
  Company Number: CN-BAXTER-2020BAX000182

PATIENT
  Age: 64 Year
  Sex: Male
  Weight: 48 kg

DRUGS (9)
  1. 0.9% SODIUM CHLORIDE INJECTION [Suspect]
     Active Substance: SODIUM CHLORIDE
     Indication: PNEUMONIA
     Route: 041
     Dates: start: 20190213, end: 20190215
  2. ZOLEDRONIC ACID [Suspect]
     Active Substance: ZOLEDRONIC ACID
     Indication: PNEUMONIA
     Dosage: ZOLEDRONIC ACID FOR INJECTION CONCENTRATE
     Route: 041
     Dates: start: 20190214, end: 20190215
  3. ZOLEDRONIC ACID [Suspect]
     Active Substance: ZOLEDRONIC ACID
     Indication: LUNG NEOPLASM MALIGNANT
  4. PEMETREXED DISODIUM [Suspect]
     Active Substance: PEMETREXED DISODIUM
     Indication: PNEUMONIA
     Dosage: PEMETREXED DISODIUM FOR INJECTION, DOSAGE FORM: LYOPHILIZED POWDER
     Route: 041
     Dates: start: 20190213, end: 20190215
  5. BENDINE [CARBOPLATIN] [Suspect]
     Active Substance: CARBOPLATIN
     Indication: PNEUMONIA
     Dosage: BENDINE INJECTION (HIGH RISK)
     Route: 041
     Dates: start: 20190213, end: 20190215
  6. PEMETREXED DISODIUM [Suspect]
     Active Substance: PEMETREXED DISODIUM
     Indication: LUNG NEOPLASM MALIGNANT
  7. BENDINE [CARBOPLATIN] [Suspect]
     Active Substance: CARBOPLATIN
     Indication: LUNG NEOPLASM MALIGNANT
  8. 0.9% SODIUM CHLORIDE INJECTION [Suspect]
     Active Substance: SODIUM CHLORIDE
     Indication: LUNG NEOPLASM MALIGNANT
     Route: 041
     Dates: start: 20190213, end: 20190215
  9. 0.9% SODIUM CHLORIDE INJECTION [Suspect]
     Active Substance: SODIUM CHLORIDE
     Route: 041
     Dates: start: 20190214, end: 20190215

REACTIONS (6)
  - Bone marrow failure [Recovering/Resolving]
  - Productive cough [Unknown]
  - Nausea [Unknown]
  - Vomiting [Unknown]
  - Oropharyngeal pain [Unknown]
  - Pyrexia [Unknown]

NARRATIVE: CASE EVENT DATE: 20190219
